FAERS Safety Report 20232280 (Version 1)
Quarter: 2021Q4

REPORT INFORMATION
  Report Type: Spontaneous
  Country: VN (occurrence: VN)
  Receive Date: 20211227
  Receipt Date: 20211227
  Transmission Date: 20220303
  Serious: Yes (Death, Hospitalization, Other)
  Sender: FDA-Public Use
  Company Number: VN-ROCHE-2986551

PATIENT
  Sex: Male

DRUGS (1)
  1. ERLOTINIB [Suspect]
     Active Substance: ERLOTINIB
     Indication: Product used for unknown indication
     Dosage: UNK UNK, UNKNOWN FREQ.
     Route: 048

REACTIONS (10)
  - Death [Fatal]
  - Hepatomegaly [Unknown]
  - Lung neoplasm [Unknown]
  - Shock [Unknown]
  - Nervous system disorder [Unknown]
  - Pain [Unknown]
  - Ascites [Unknown]
  - Loss of consciousness [Unknown]
  - Abdominal distension [Unknown]
  - Malaise [Unknown]
